FAERS Safety Report 9183092 (Version 1)
Quarter: 2013Q1

REPORT INFORMATION
  Report Type: Spontaneous
  Country: US (occurrence: US)
  Receive Date: 20130322
  Receipt Date: 20130322
  Transmission Date: 20140127
  Serious: No
  Sender: FDA-Public Use
  Company Number: US-BRISTOL-MYERS SQUIBB COMPANY-16378424

PATIENT
  Age: 46 Year
  Sex: Male
  Weight: 113 kg

DRUGS (2)
  1. ERBITUX [Suspect]
     Indication: HEPATIC CANCER
     Dosage: EVERY THURSDAY,AND EVERY 3RD THURSDAY
     Dates: start: 20111013
  2. CAMPTOSAR [Suspect]

REACTIONS (2)
  - Rash [Unknown]
  - Alopecia [Unknown]
